FAERS Safety Report 9187442 (Version 1)
Quarter: 2013Q1

REPORT INFORMATION
  Report Type: Spontaneous
  Country: US (occurrence: US)
  Receive Date: 20130325
  Receipt Date: 20130325
  Transmission Date: 20140127
  Serious: Yes (Other)
  Sender: FDA-Public Use
  Company Number: US-FRI-1000043536

PATIENT
  Age: 57 Year
  Sex: Male
  Weight: 89.8 kg

DRUGS (1)
  1. VIIBRYD [Suspect]
     Indication: DEPRESSION
     Dosage: 10-40 MG
     Route: 048
     Dates: start: 20120829, end: 20120926

REACTIONS (2)
  - Diabetes mellitus inadequate control [Recovered/Resolved]
  - Abdominal discomfort [Unknown]
